FAERS Safety Report 23952398 (Version 1)
Quarter: 2024Q2

REPORT INFORMATION
  Report Type: Spontaneous
  Country: CN (occurrence: CN)
  Receive Date: 20240607
  Receipt Date: 20240607
  Transmission Date: 20240716
  Serious: Yes (Other)
  Sender: FDA-Public Use
  Company Number: CN-GILEAD-2024-0675193

PATIENT
  Age: 35 Year
  Sex: Male

DRUGS (2)
  1. SOVALDI [Suspect]
     Active Substance: SOFOSBUVIR
     Indication: Hepatitis C
     Dosage: UNK
     Route: 065
     Dates: start: 202308
  2. COBLOPASVIR [Suspect]
     Active Substance: COBLOPASVIR
     Indication: Hepatitis C
     Dosage: UNK
     Route: 065
     Dates: start: 202308

REACTIONS (2)
  - Hepatitis C [Unknown]
  - Drug ineffective [Unknown]
